FAERS Safety Report 9069776 (Version 1)
Quarter: 2013Q1

REPORT INFORMATION
  Report Type: Report from Study
  Country: AR (occurrence: AR)
  Receive Date: 20130215
  Receipt Date: 20130215
  Transmission Date: 20140127
  Serious: Yes (Other)
  Sender: FDA-Public Use
  Company Number: AR-ABBOTT-12P-007-0982253-00

PATIENT
  Age: 69 None
  Sex: Female

DRUGS (1)
  1. HUMIRA [Suspect]
     Indication: RHEUMATOID ARTHRITIS
     Route: 058
     Dates: start: 20110601

REACTIONS (5)
  - Haemorrhage [Recovering/Resolving]
  - Fall [Unknown]
  - Respiratory distress [Unknown]
  - Hypertension [Not Recovered/Not Resolved]
  - Hypotension [Unknown]
